FAERS Safety Report 13933324 (Version 7)
Quarter: 2017Q4

REPORT INFORMATION
  Report Type: Spontaneous
  Country: DE (occurrence: DE)
  Receive Date: 20170904
  Receipt Date: 20171109
  Transmission Date: 20180320
  Serious: Yes (Hospitalization, Other)
  Sender: FDA-Public Use
  Company Number: DE-AMGEN-DEUSP2017123243

PATIENT
  Age: 51 Year
  Sex: Female

DRUGS (2)
  1. NEULASTA [Suspect]
     Active Substance: PEGFILGRASTIM
     Indication: PRODUCT USED FOR UNKNOWN INDICATION
     Dosage: UNK UNK, CYCLICAL (24H AFTER DAY ADMINISTRATION)
     Route: 065
     Dates: end: 201708
  2. GEMCITABINE [Concomitant]
     Active Substance: GEMCITABINE\GEMCITABINE HYDROCHLORIDE
     Dosage: UNK UNK, Q3WK (3 WEEKLY CYCLE DAY 1, DAY 8, DAY 15)
     Dates: end: 201708

REACTIONS (16)
  - Dizziness [Unknown]
  - Cough [Not Recovered/Not Resolved]
  - Inflammation [Not Recovered/Not Resolved]
  - Sepsis [Unknown]
  - Alopecia [Recovered/Resolved]
  - Pyrexia [Not Recovered/Not Resolved]
  - Vomiting [Not Recovered/Not Resolved]
  - Flatulence [Not Recovered/Not Resolved]
  - Fall [Unknown]
  - Ankle fracture [Unknown]
  - Renal failure [Unknown]
  - White blood cell count abnormal [Unknown]
  - Headache [Unknown]
  - Platelet count decreased [Unknown]
  - Diarrhoea [Recovered/Resolved]
  - Oropharyngeal pain [Not Recovered/Not Resolved]

NARRATIVE: CASE EVENT DATE: 2017
